FAERS Safety Report 12754026 (Version 1)
Quarter: 2016Q3

REPORT INFORMATION
  Report Type: Spontaneous
  Country: US (occurrence: US)
  Receive Date: 20160915
  Receipt Date: 20160915
  Transmission Date: 20161109
  Serious: Yes (Hospitalization)
  Sender: FDA-Public Use
  Company Number: US-ALLERGAN-1661143US

PATIENT
  Age: 70 Year
  Sex: Female

DRUGS (1)
  1. VIBERZI [Suspect]
     Active Substance: ELUXADOLINE
     Indication: IRRITABLE BOWEL SYNDROME
     Dosage: 100 MG, BID
     Route: 048
     Dates: start: 201606, end: 201606

REACTIONS (2)
  - Abdominal pain [Unknown]
  - Constipation [Unknown]

NARRATIVE: CASE EVENT DATE: 201606
